FAERS Safety Report 6972469-X (Version None)
Quarter: 2010Q3

REPORT INFORMATION
  Report Type: 
  Country: None (occurrence: None)
  Receive Date: 20100908
  Receipt Date: 20100908
  Transmission Date: 20110219
  Serious: Yes (Other)
  Sender: FDA-Public Use
  Company Number: None

PATIENT
  Sex: Male
  Weight: 149.2334 kg

DRUGS (2)
  1. ZESTRIL [Suspect]
     Indication: HYPERTENSION
     Dosage: 10MG BID PO
     Route: 048
     Dates: start: 19960402
  2. ZESTRIL [Suspect]
     Indication: HYPERTENSION
     Dosage: 10MG BID PO
     Route: 048
     Dates: start: 19980925

REACTIONS (1)
  - COUGH [None]
